FAERS Safety Report 8766004 (Version 3)
Quarter: 2013Q2

REPORT INFORMATION
  Report Type: Report from Study
  Country: JP (occurrence: JP)
  Receive Date: 20120904
  Receipt Date: 20130408
  Transmission Date: 20140414
  Serious: Yes (Other)
  Sender: FDA-Public Use
  Company Number: JP-009507513-1208JPN009884

PATIENT
  Age: 64 Year
  Sex: Male
  Weight: 56 kg

DRUGS (10)
  1. PEGINTRON [Suspect]
     Indication: CHRONIC HEPATITIS C
     Dosage: 1.4 MICROGRAM PER KILOGRAM, QW, DAILY DOSE UNKNOWN
     Route: 058
     Dates: start: 20120612, end: 20120706
  2. REBETOL [Suspect]
     Indication: CHRONIC HEPATITIS C
     Dosage: 600 MG, QD
     Route: 048
     Dates: start: 20120612, end: 20120706
  3. TELAVIC [Suspect]
     Indication: CHRONIC HEPATITIS C
     Dosage: 1500 MG, QD
     Route: 048
     Dates: start: 20120612, end: 20120706
  4. DIART [Concomitant]
     Indication: CHRONIC HEPATITIS C
     Dosage: 30 MG, QD, FORMULATION: POR
     Route: 048
     Dates: end: 20120706
  5. TAKEPRON [Concomitant]
     Indication: PROPHYLAXIS
     Dosage: 15 MG, QD, FORMULATION: POR
     Route: 048
     Dates: end: 20120722
  6. PROMAC (POLAPREZINC) [Concomitant]
     Indication: PROPHYLAXIS
     Dosage: 150 MG, QD, FORMULATION :POR
     Route: 048
     Dates: end: 20120706
  7. JUZEN-TAIHO-TO [Concomitant]
     Indication: DECREASED APPETITE
     Dosage: 7.5 MG, QD
     Route: 048
     Dates: end: 20120706
  8. CELECOX [Concomitant]
     Indication: PROPHYLAXIS
     Dosage: 100 MG, QD
     Route: 048
     Dates: end: 20120706
  9. ALDACTONE A [Concomitant]
     Indication: CHRONIC HEPATITIS C
     Dosage: 25 MG, QD
     Route: 048
  10. BUFFERIN [Concomitant]
     Indication: PROPHYLAXIS
     Dosage: 1 DF, QD
     Route: 048
     Dates: end: 20120722

REACTIONS (2)
  - Liver disorder [Recovered/Resolved]
  - Renal disorder [Recovered/Resolved]
